FAERS Safety Report 16624045 (Version 1)
Quarter: 2019Q3

REPORT INFORMATION
  Report Type: Spontaneous
  Country: US (occurrence: US)
  Receive Date: 20190724
  Receipt Date: 20190724
  Transmission Date: 20191004
  Serious: No
  Sender: FDA-Public Use
  Company Number: US-ASTRAZENECA-2019SF02303

PATIENT
  Sex: Female
  Weight: 69.9 kg

DRUGS (14)
  1. FOMOTEROL FUMARATE (PERFORMIST) [Concomitant]
     Dosage: TWO TIMES A DAY
     Route: 055
  2. CLONAZEPAM. [Concomitant]
     Active Substance: CLONAZEPAM
     Dosage: AT NIGHT
     Route: 048
  3. OLANZAPINE. [Concomitant]
     Active Substance: OLANZAPINE
     Dosage: AT NIGHT
     Route: 048
  4. METHENAMINE [Concomitant]
     Active Substance: METHENAMINE
     Dosage: AT NIGHT
     Route: 048
  5. KEYTRUDA [Concomitant]
     Active Substance: PEMBROLIZUMAB
     Dosage: UNKNOWN
     Route: 065
  6. DALIRESP [Suspect]
     Active Substance: ROFLUMILAST
     Indication: CHRONIC OBSTRUCTIVE PULMONARY DISEASE
     Route: 048
  7. MONTELUKAST [Concomitant]
     Active Substance: MONTELUKAST SODIUM
     Dosage: DAILY
     Route: 048
  8. AZITHROMYCIN ANHYDROUS. [Concomitant]
     Active Substance: AZITHROMYCIN ANHYDROUS
     Route: 048
  9. TERAZOSINE [Concomitant]
     Dosage: AT NIGHT
     Route: 048
  10. PERFOROMIST [Concomitant]
     Active Substance: FORMOTEROL FUMARATE DIHYDRATE
     Route: 055
  11. AZITHROMYCIN ANHYDROUS. [Concomitant]
     Active Substance: AZITHROMYCIN ANHYDROUS
     Dosage: 5 DAYS AB WEEK
     Route: 048
  12. BUDESONIDE. [Suspect]
     Active Substance: BUDESONIDE
     Dosage: TWO TIMES A DAY
     Route: 055
  13. VENLAFAXINE ER [Concomitant]
     Active Substance: VENLAFAXINE HYDROCHLORIDE
     Dosage: AT NIGHT
     Route: 048
  14. FERROUS SULFATE. [Concomitant]
     Active Substance: FERROUS SULFATE
     Dosage: AT NIGHT
     Route: 048

REACTIONS (9)
  - Oxygen saturation decreased [Unknown]
  - Humidity intolerance [Unknown]
  - Sensitivity to weather change [Unknown]
  - Pulmonary congestion [Unknown]
  - Hypoacusis [Unknown]
  - Dyspnoea [Unknown]
  - Drug resistance [Unknown]
  - Productive cough [Unknown]
  - Chest pain [Unknown]
